FAERS Safety Report 20662006 (Version 2)
Quarter: 2022Q2

REPORT INFORMATION
  Report Type: Spontaneous
  Country: JP (occurrence: JP)
  Receive Date: 20220401
  Receipt Date: 20220421
  Transmission Date: 20220721
  Serious: Yes (Hospitalization, Other)
  Sender: FDA-Public Use
  Company Number: JP-SERVIER-S22003023

PATIENT
  Age: 79 Year
  Sex: Male

DRUGS (3)
  1. ONIVYDE [Suspect]
     Active Substance: IRINOTECAN HYDROCHLORIDE
     Indication: Pancreatic carcinoma
     Dosage: 110.8 MG/BODY
     Route: 041
     Dates: start: 20220303, end: 20220303
  2. FLUOROURACIL [Concomitant]
     Active Substance: FLUOROURACIL
     Indication: Pancreatic carcinoma
     Dosage: 3801.6 MG/BODY
     Route: 041
     Dates: start: 20220303, end: 2022
  3. LEVOLEUCOVORIN CALCIUM [Concomitant]
     Active Substance: LEVOLEUCOVORIN CALCIUM
     Indication: Pancreatic carcinoma
     Dosage: 316.8 MG/BODY
     Route: 065
     Dates: start: 20220303, end: 2022

REACTIONS (5)
  - Malaise [Recovering/Resolving]
  - Decreased appetite [Recovering/Resolving]
  - Abdominal pain lower [Not Recovered/Not Resolved]
  - White blood cell count decreased [Recovered/Resolved]
  - Neutrophil count decreased [Recovered/Resolved]

NARRATIVE: CASE EVENT DATE: 20220311
